FAERS Safety Report 9355335 (Version 1)
Quarter: 2013Q2

REPORT INFORMATION
  Report Type: Report from Study
  Country: CA (occurrence: CA)
  Receive Date: 20130619
  Receipt Date: 20130619
  Transmission Date: 20140414
  Serious: Yes (Other)
  Sender: FDA-Public Use
  Company Number: CA-JNJFOC-20130609965

PATIENT
  Age: 53 Year
  Sex: Male
  Weight: 82.6 kg

DRUGS (6)
  1. REMICADE [Suspect]
     Indication: CROHN^S DISEASE
     Route: 042
     Dates: start: 20090123
  2. ASPIRIN [Concomitant]
     Route: 065
  3. VITAMIN B12 [Concomitant]
     Route: 065
  4. IRON [Concomitant]
     Route: 065
  5. CELEXA [Concomitant]
     Route: 065
  6. PENTOXYPHYLLINE [Concomitant]
     Route: 065

REACTIONS (1)
  - Cholelithiasis [Unknown]
